FAERS Safety Report 12810282 (Version 1)
Quarter: 2016Q4

REPORT INFORMATION
  Report Type: Spontaneous
  Country: BR (occurrence: BR)
  Receive Date: 20161005
  Receipt Date: 20161005
  Transmission Date: 20170207
  Serious: Yes (Other)
  Sender: FDA-Public Use
  Company Number: BR-ROCHE-1837970

PATIENT
  Sex: Female

DRUGS (2)
  1. VALERIANE [Concomitant]
     Active Substance: VALERIAN
  2. RIVOTRIL [Suspect]
     Active Substance: CLONAZEPAM
     Indication: INSOMNIA
     Route: 065

REACTIONS (9)
  - Malaise [Recovered/Resolved]
  - Seizure [Unknown]
  - Liver disorder [Not Recovered/Not Resolved]
  - Drug ineffective [Unknown]
  - Dyspnoea [Unknown]
  - Burning sensation [Recovered/Resolved]
  - Vaginal discharge [Not Recovered/Not Resolved]
  - Drug dependence [Unknown]
  - Chromaturia [Not Recovered/Not Resolved]
